FAERS Safety Report 4331768-0 (Version None)
Quarter: 2004Q2

REPORT INFORMATION
  Report Type: 
  Country: None (occurrence: None)
  Receive Date: 20040405
  Receipt Date: 20030630
  Transmission Date: 20050107
  Serious: No
  Sender: FDA-Public Use
  Company Number: US-GLAXOSMITHKLINE-A0414852A

PATIENT
  Age: 4 Year
  Sex: Male

DRUGS (2)
  1. FLOVENT [Suspect]
     Indication: ASTHMA
     Dosage: 88MCG AT NIGHT
     Route: 055
     Dates: start: 20030401
  2. SINGULAIR [Concomitant]
     Route: 065

REACTIONS (4)
  - AGGRESSION [None]
  - AGITATION [None]
  - INSOMNIA [None]
  - RESTLESSNESS [None]
